FAERS Safety Report 5859754-X (Version None)
Quarter: 2008Q3

REPORT INFORMATION
  Report Type: 
  Country: None (occurrence: None)
  Receive Date: 20080827
  Receipt Date: 20080819
  Transmission Date: 20090109
  Serious: Yes (Other)
  Sender: FDA-Public Use
  Company Number: PR-BAYER-200831577NA

PATIENT
  Age: 32 Year
  Sex: Female

DRUGS (2)
  1. ULTRAVIST (PHARMACY BULK) [Suspect]
     Indication: COMPUTERISED TOMOGRAM ABDOMEN
     Dosage: TOTAL DAILY DOSE: 90 ML  UNIT DOSE: 500 ML
     Route: 042
     Dates: start: 20080723, end: 20080723
  2. ANTIINFLAMMATORY MEDICINE [Concomitant]

REACTIONS (5)
  - COUGH [None]
  - DISORIENTATION [None]
  - LOSS OF CONSCIOUSNESS [None]
  - TREMOR [None]
  - VOMITING [None]
